FAERS Safety Report 17342085 (Version 1)
Quarter: 2020Q1

REPORT INFORMATION
  Report Type: Spontaneous
  Country: US (occurrence: US)
  Receive Date: 20200129
  Receipt Date: 20200129
  Transmission Date: 20200409
  Serious: No
  Sender: FDA-Public Use
  Company Number: US-ALLERGAN-1918919US

PATIENT
  Age: 42 Year
  Sex: Female

DRUGS (6)
  1. BOTOX COSMETIC [Suspect]
     Active Substance: ONABOTULINUMTOXINA
     Indication: SKIN WRINKLING
     Dosage: 65 UNITS TO GLABELLA, LATERAL BROW, BILATERAL CROWS FEET AND FOREHEAD
     Route: 030
     Dates: start: 20190307, end: 20190307
  2. BIRTH CONTROL PILL [Concomitant]
     Active Substance: UNSPECIFIED INGREDIENT
     Indication: CONTRACEPTION
  3. BOTOX COSMETIC [Suspect]
     Active Substance: ONABOTULINUMTOXINA
     Indication: SKIN WRINKLING
     Dosage: 65 UNITS TO GLABELLA, LATERAL BROW, BILATERAL CROWS FEET AND FOREHEAD
     Route: 030
     Dates: start: 20190307, end: 20190307
  4. BOTOX COSMETIC [Suspect]
     Active Substance: ONABOTULINUMTOXINA
     Indication: FACE LIFT
     Dosage: 65 UNITS TO GLABELLA, LATERAL BROW, BILATERAL CROWS FEET AND FOREHEAD
     Route: 030
     Dates: start: 20190307, end: 20190307
  5. BOTOX COSMETIC [Suspect]
     Active Substance: ONABOTULINUMTOXINA
     Indication: SKIN WRINKLING
     Dosage: 65 UNITS TO GLABELLA, LATERAL BROW, BILATERAL CROWS FEET AND FOREHEAD
     Route: 030
     Dates: start: 20190307, end: 20190307
  6. BOTOX COSMETIC [Suspect]
     Active Substance: ONABOTULINUMTOXINA
     Dosage: UNK

REACTIONS (9)
  - Off label use [Unknown]
  - Injection site discomfort [Recovered/Resolved]
  - Injection site oedema [Unknown]
  - Muscle tightness [Not Recovered/Not Resolved]
  - Injection site pain [Unknown]
  - Muscle spasms [Not Recovered/Not Resolved]
  - Injection site rash [Not Recovered/Not Resolved]
  - Face lift [Recovered/Resolved]
  - Injection site mass [Unknown]

NARRATIVE: CASE EVENT DATE: 20190307
